FAERS Safety Report 6240424-3 (Version None)
Quarter: 2009Q2

REPORT INFORMATION
  Report Type: 
  Country: None (occurrence: None)
  Receive Date: 20090618
  Receipt Date: 20090618
  Transmission Date: 20091009
  Serious: Yes (Hospitalization)
  Sender: FDA-Public Use
  Company Number: None

PATIENT
  Age: 92 Year
  Sex: Female

DRUGS (2)
  1. METOCLOPRAMIDE HYDROCHLORIDE [Suspect]
     Indication: DIABETIC GASTROPARESIS
     Dosage: METCLOPRAMIDE 5 MG THREE TIMES DAILY PO
     Route: 048
  2. AMITRIPTYLINE HCL [Suspect]
     Indication: DYSAESTHESIA
     Dosage: AMITRIPTYLINE 25 MG AT BEDTIME PO
     Route: 048

REACTIONS (7)
  - ATRIAL FIBRILLATION [None]
  - DEMENTIA [None]
  - DIABETIC NEUROPATHY [None]
  - DYSKINESIA [None]
  - MIDDLE INSOMNIA [None]
  - PARKINSONISM [None]
  - RESTLESS LEGS SYNDROME [None]
